FAERS Safety Report 5494842-1 (Version None)
Quarter: 2007Q4

REPORT INFORMATION
  Report Type: 
  Country: None (occurrence: None)
  Receive Date: 20071024
  Receipt Date: 20070514
  Transmission Date: 20080405
  Serious: Yes (Other)
  Sender: FDA-Public Use
  Company Number: US-SANOFI-SYNTHELABO-A03200702171

PATIENT
  Sex: Female
  Weight: 123.4 kg

DRUGS (1)
  1. AMBIEN [Suspect]
     Indication: INSOMNIA
     Route: 048
     Dates: start: 20061215, end: 20070315

REACTIONS (3)
  - AMNESIA [None]
  - BURNS SECOND DEGREE [None]
  - THERAPY REGIMEN CHANGED [None]
